FAERS Safety Report 4410788-1 (Version None)
Quarter: 2004Q3

REPORT INFORMATION
  Report Type: 
  Country: None (occurrence: None)
  Receive Date: 20040729
  Receipt Date: 20040722
  Transmission Date: 20050211
  Serious: Yes (Other)
  Sender: FDA-Public Use
  Company Number: GB-MERCK-0407GBR00223

PATIENT
  Age: 39 Year
  Sex: Male
  Weight: 101 kg

DRUGS (10)
  1. ALBUTEROL [Concomitant]
     Route: 055
  2. BAMBUTEROL [Concomitant]
     Route: 048
  3. BETAMETHASONE VALERATE [Concomitant]
     Route: 061
  4. BUDESONIDE [Concomitant]
     Route: 065
  5. IPRATROPIUM BROMIDE [Concomitant]
     Route: 055
  6. KETOCONAZOLE [Concomitant]
     Route: 061
  7. SINGULAIR [Suspect]
     Indication: ASTHMA
     Route: 048
     Dates: start: 20000406, end: 20020301
  8. SALMETEROL [Concomitant]
     Route: 055
  9. TERBUTALINE SULFATE [Concomitant]
     Route: 058
  10. THEOPHYLLINE [Concomitant]
     Route: 048

REACTIONS (1)
  - ALOPECIA TOTALIS [None]
